FAERS Safety Report 6700530-3 (Version None)
Quarter: 2010Q2

REPORT INFORMATION
  Report Type: 
  Country: None (occurrence: None)
  Receive Date: 20100428
  Receipt Date: 20100421
  Transmission Date: 20101027
  Serious: Yes (Other)
  Sender: FDA-Public Use
  Company Number: A0838754A

PATIENT
  Age: 35 Year
  Sex: Female
  Weight: 61.4 kg

DRUGS (3)
  1. LAMOTRIGINE [Suspect]
     Indication: BIPOLAR DISORDER
     Dosage: 250MG PER DAY
     Route: 048
     Dates: start: 20090101, end: 20090101
  2. OXCARBAZEPINE [Concomitant]
     Indication: BIPOLAR DISORDER
     Dates: start: 20091101, end: 20091201
  3. ATIVAN [Concomitant]
     Indication: ANXIETY
     Dates: start: 20060212

REACTIONS (6)
  - CONDITION AGGRAVATED [None]
  - DEPRESSION [None]
  - DRUG INEFFECTIVE [None]
  - DRUG INTOLERANCE [None]
  - PSYCHOTIC DISORDER [None]
  - SUICIDAL IDEATION [None]
